FAERS Safety Report 4503866-X (Version None)
Quarter: 2004Q4

REPORT INFORMATION
  Report Type: 
  Country: None (occurrence: None)
  Receive Date: 20041115
  Receipt Date: 20041109
  Transmission Date: 20050328
  Serious: Yes (Hospitalization)
  Sender: FDA-Public Use
  Company Number: 2004-11-0440

PATIENT
  Age: 45 Year
  Sex: Male

DRUGS (5)
  1. TEMODAL [Suspect]
     Indication: GLIOMA
     Dosage: 75 MG/M^2 ORAL
     Route: 048
  2. RADIATION THERAPY NO DOSE FORM [Suspect]
     Indication: GLIOMA
  3. DEXAMETHASONE [Concomitant]
  4. RANITIDINE [Concomitant]
  5. ANTICONVULSANTS (NOS) [Concomitant]

REACTIONS (2)
  - DEEP VEIN THROMBOSIS [None]
  - PULMONARY EMBOLISM [None]
